FAERS Safety Report 6652702-4 (Version None)
Quarter: 2010Q1

REPORT INFORMATION
  Report Type: 
  Country: None (occurrence: None)
  Receive Date: 20100326
  Receipt Date: 20100318
  Transmission Date: 20100710
  Serious: Yes (Other)
  Sender: FDA-Public Use
  Company Number: DE-JNJFOC-20100305958

PATIENT
  Sex: Female

DRUGS (2)
  1. STELARA [Suspect]
     Indication: DRUG USE FOR UNKNOWN INDICATION
     Route: 058
  2. LEVOTHYROXINE SODIUM [Concomitant]
     Route: 048

REACTIONS (3)
  - GRAND MAL CONVULSION [None]
  - MEMORY IMPAIRMENT [None]
  - RHINITIS [None]
